FAERS Safety Report 8997034 (Version 1)
Quarter: 2013Q1

REPORT INFORMATION
  Report Type: Spontaneous
  Country: US (occurrence: US)
  Receive Date: 20130104
  Receipt Date: 20130104
  Transmission Date: 20140127
  Serious: Yes (Other)
  Sender: FDA-Public Use
  Company Number: US-PFIZER INC-2013000291

PATIENT
  Age: 53 Year
  Sex: Male

DRUGS (6)
  1. MORPHINE SULFATE [Suspect]
     Indication: CENTRAL PAIN SYNDROME
     Dosage: UNK
     Route: 048
  2. HYDROCODONE W/ACETAMINOPHEN [Suspect]
     Indication: CENTRAL PAIN SYNDROME
     Dosage: UNK
     Route: 048
  3. GABAPENTIN [Concomitant]
     Indication: CENTRAL PAIN SYNDROME
     Dosage: UNK
  4. PREGABALIN [Concomitant]
     Indication: CENTRAL PAIN SYNDROME
     Dosage: UNK
  5. AMITRIPTYLINE [Concomitant]
     Indication: CENTRAL PAIN SYNDROME
     Dosage: UNK
  6. NORTRIPTYLINE [Concomitant]
     Indication: CENTRAL PAIN SYNDROME
     Dosage: UNK

REACTIONS (1)
  - Cognitive disorder [Unknown]
